FAERS Safety Report 26081305 (Version 1)
Quarter: 2025Q4

REPORT INFORMATION
  Report Type: Other
  Country: EU (occurrence: EU)
  Receive Date: 20251124
  Receipt Date: 20251124
  Transmission Date: 20260118
  Serious: Yes (Hospitalization)
  Sender: ZYDUS PHARM
  Company Number: None

PATIENT

DRUGS (2)
  1. SERTRALINE [Suspect]
     Active Substance: SERTRALINE HYDROCHLORIDE
     Indication: Poisoning deliberate
     Dosage: 1400 MILLIGRAM
     Route: 048
     Dates: start: 20251016, end: 20251016
  2. TEGRETOL [Suspect]
     Active Substance: CARBAMAZEPINE
     Indication: Poisoning deliberate
     Dosage: 40 DOSAGE FORM 1 TOTAL
     Route: 048
     Dates: start: 20251016, end: 20251016

REACTIONS (4)
  - Vertigo [Recovered/Resolved]
  - Somnolence [Recovered/Resolved]
  - Vomiting [Recovered/Resolved]
  - Poisoning deliberate [Recovered/Resolved]

NARRATIVE: CASE EVENT DATE: 20251016
